FAERS Safety Report 23039199 (Version 1)
Quarter: 2023Q4

REPORT INFORMATION
  Report Type: Spontaneous
  Country: DE (occurrence: DE)
  Receive Date: 20231006
  Receipt Date: 20231006
  Transmission Date: 20240109
  Serious: Yes (Hospitalization)
  Sender: FDA-Public Use
  Company Number: DE-LESVI-2023004518

PATIENT
  Age: 31 Year
  Sex: Male

DRUGS (27)
  1. SERTRALINE [Suspect]
     Active Substance: SERTRALINE HYDROCHLORIDE
     Indication: Cluster headache
     Dosage: UNK
     Route: 065
  2. TOPIRAMATE [Suspect]
     Active Substance: TOPIRAMATE
     Indication: Cluster headache
     Dosage: 100 MILLIGRAM (2 ? 50 MG)
     Route: 065
     Dates: start: 2019
  3. TOPIRAMATE [Suspect]
     Active Substance: TOPIRAMATE
     Dosage: UNK
     Route: 065
     Dates: start: 2018, end: 2018
  4. VALPROIC ACID [Suspect]
     Active Substance: VALPROIC ACID
     Indication: Cluster headache
     Dosage: 150 MILLIGRAM, TID (THREE TIMES DAILY)
     Route: 065
     Dates: start: 2018
  5. NARATRIPTAN [Suspect]
     Active Substance: NARATRIPTAN HYDROCHLORIDE
     Indication: Cluster headache
     Dosage: BID (TWICE A DAY)
     Route: 048
     Dates: start: 2018
  6. CORTISONE [Concomitant]
     Active Substance: CORTISONE
     Indication: Cluster headache
     Dosage: UNK
     Route: 065
  7. IBUPROFEN [Concomitant]
     Active Substance: IBUPROFEN
     Indication: Cluster headache
     Dosage: UNK
     Route: 065
  8. LITHIUM [Concomitant]
     Active Substance: LITHIUM
     Indication: Cluster headache
     Dosage: 900 MILLIGRAM (2 ? 450 MG SERUM LEVELS)
     Route: 065
     Dates: end: 2018
  9. LITHIUM [Concomitant]
     Active Substance: LITHIUM
     Dosage: 150 MILLIGRAM, QD (2 ? 75 MG DAILY)
     Route: 065
  10. LITHIUM [Concomitant]
     Active Substance: LITHIUM
     Dosage: 900 MILLIGRAM (2 ? 450 MG)
     Route: 065
     Dates: start: 2019
  11. LITHIUM [Concomitant]
     Active Substance: LITHIUM
     Dosage: 1350 MILLIGRAM, QD (3 ? 450 MG)
     Route: 065
     Dates: start: 2018
  12. TILIDINE [Concomitant]
     Active Substance: TILIDINE
     Indication: Cluster headache
     Dosage: UNK
     Route: 065
  13. SUMATRIPTAN [Concomitant]
     Active Substance: SUMATRIPTAN
     Indication: Cluster headache
     Dosage: UNK
     Route: 048
  14. CAPSAICIN [Concomitant]
     Active Substance: CAPSAICIN
     Indication: Cluster headache
     Dosage: TID (3 TIMES A DAY)
     Route: 045
  15. DRONABINOL [Concomitant]
     Active Substance: DRONABINOL
     Indication: Cluster headache
     Dosage: UNK
     Route: 065
  16. AMITRIPTYLINE HYDROCHLORIDE [Concomitant]
     Active Substance: AMITRIPTYLINE HYDROCHLORIDE
     Indication: Cluster headache
     Dosage: UNK
     Route: 065
  17. SUMATRIPTAN [Concomitant]
     Active Substance: SUMATRIPTAN
     Indication: Cluster headache
     Dosage: 6 MILLIGRAM
     Route: 058
     Dates: start: 2018
  18. ACETAMINOPHEN [Concomitant]
     Active Substance: ACETAMINOPHEN
     Indication: Cluster headache
     Dosage: UNK
     Route: 065
  19. ZOLMITRIPTAN [Concomitant]
     Active Substance: ZOLMITRIPTAN
     Indication: Cluster headache
     Dosage: UNK
     Route: 045
  20. VERAPAMIL [Concomitant]
     Active Substance: VERAPAMIL HYDROCHLORIDE
     Indication: Cluster headache
     Dosage: 960 MILLIGRAM, QD (2 ? 480 MG DAILY)
     Route: 065
  21. VERAPAMIL [Concomitant]
     Active Substance: VERAPAMIL HYDROCHLORIDE
     Dosage: 1440 MILLIGRAM, QD (480 MG THREE TIMES A DAY)
     Route: 065
  22. VERAPAMIL [Concomitant]
     Active Substance: VERAPAMIL HYDROCHLORIDE
     Dosage: 720 MILLIGRAM (2 ? 360)
     Route: 065
     Dates: start: 2019
  23. ERENUMAB [Concomitant]
     Active Substance: ERENUMAB
     Indication: Cluster headache
     Dosage: 140 MILLIGRAM, Q28D
     Route: 065
     Dates: start: 2019
  24. GABAPENTIN [Concomitant]
     Active Substance: GABAPENTIN
     Indication: Cluster headache
     Dosage: 2400 MILLIGRAM (FOUR TIMES 600 MG)
     Route: 065
  25. BUPROPION HYDROCHLORIDE [Concomitant]
     Active Substance: BUPROPION HYDROCHLORIDE
     Indication: Cluster headache
     Dosage: 150 MILLIGRAM, QD (AT NIGHT)
     Route: 065
  26. VERAPAMIL HYDROCHLORIDE [Concomitant]
     Active Substance: VERAPAMIL HYDROCHLORIDE
     Indication: Cluster headache
     Dosage: 240 MILLIGRAM, QD
     Route: 065
  27. VERAPAMIL HYDROCHLORIDE [Concomitant]
     Active Substance: VERAPAMIL HYDROCHLORIDE
     Dosage: 480 MILLIGRAM, QD (TWICE 240 MG PER DAY)
     Route: 065

REACTIONS (2)
  - Drug ineffective [Unknown]
  - Impaired work ability [Unknown]
